FAERS Safety Report 19440441 (Version 2)
Quarter: 2021Q3

REPORT INFORMATION
  Report Type: Report from Study
  Country: US (occurrence: US)
  Receive Date: 20210621
  Receipt Date: 20210704
  Transmission Date: 20211014
  Serious: Yes (Hospitalization)
  Sender: FDA-Public Use
  Company Number: US-JNJFOC-20210634488

PATIENT
  Age: 18 Year
  Sex: Female
  Weight: 66 kg

DRUGS (11)
  1. INFLIXIMAB, RECOMBINANT [Suspect]
     Active Substance: INFLIXIMAB
     Indication: INFLAMMATORY BOWEL DISEASE
     Route: 042
     Dates: start: 20120330, end: 20131107
  2. ACETAMINOPHEN. [Concomitant]
     Active Substance: ACETAMINOPHEN
  3. CAPECITABINE. [Concomitant]
     Active Substance: CAPECITABINE
  4. INFLIXIMAB, RECOMBINANT [Suspect]
     Active Substance: INFLIXIMAB
     Indication: CROHN^S DISEASE
  5. FLUOXETINE HCL [Concomitant]
     Active Substance: FLUOXETINE HYDROCHLORIDE
  6. ATOMOXETINE. [Concomitant]
     Active Substance: ATOMOXETINE HYDROCHLORIDE
  7. HYDROCODONE/ACETAMINOPHEN [Concomitant]
     Active Substance: ACETAMINOPHEN\HYDROCODONE
  8. IBUPROFEN. [Concomitant]
     Active Substance: IBUPROFEN
  9. HUMIRA [Concomitant]
     Active Substance: ADALIMUMAB
  10. TOFACITINIB [Concomitant]
     Active Substance: TOFACITINIB
  11. WELLBUTRIN [Concomitant]
     Active Substance: BUPROPION HYDROCHLORIDE
     Dosage: SR

REACTIONS (1)
  - Crohn^s disease [Recovered/Resolved]

NARRATIVE: CASE EVENT DATE: 20190613
